FAERS Safety Report 9135056 (Version 1)
Quarter: 2013Q1

REPORT INFORMATION
  Report Type: Spontaneous
  Country: US (occurrence: US)
  Receive Date: 20130304
  Receipt Date: 20130304
  Transmission Date: 20140127
  Serious: No
  Sender: FDA-Public Use
  Company Number: US-TEVA-389264USA

PATIENT
  Sex: Female
  Weight: 59.47 kg

DRUGS (15)
  1. COPAXONE [Suspect]
     Indication: MULTIPLE SCLEROSIS
     Dosage: 20 MILLIGRAM DAILY;
     Route: 058
     Dates: start: 20101111
  2. SYNTHROID [Concomitant]
     Dosage: 150 MICROGRAM DAILY;
     Route: 048
  3. PLAVIX [Concomitant]
     Dosage: 75 MILLIGRAM DAILY;
     Route: 048
  4. CYTOMEL [Concomitant]
     Dosage: 37.5 MILLIGRAM DAILY;
     Route: 048
  5. NEURONTIN [Concomitant]
     Dosage: 1600 MILLIGRAM DAILY;
     Route: 048
  6. CLORAZEPATE [Concomitant]
     Dosage: 375 MILLIGRAM DAILY;
     Route: 048
  7. FIORICET [Concomitant]
     Dosage: DOSE UNIT: 50MG/325MG/40MG; DAILY DOSE: 100MG/650MG/80MG
     Route: 048
  8. XANAX [Concomitant]
     Dosage: 1 MILLIGRAM DAILY;
     Route: 048
  9. FLEXERIL [Concomitant]
     Dosage: 10 MILLIGRAM DAILY;
     Route: 048
  10. MECLIZINE [Concomitant]
     Route: 048
  11. TORADOL [Concomitant]
     Route: 048
  12. LEXAPRO [Concomitant]
     Dosage: 40 MILLIGRAM DAILY;
     Route: 048
  13. LIPITOR [Concomitant]
     Dosage: 80 MILLIGRAM DAILY;
     Route: 048
  14. TOPAMAX [Concomitant]
     Dosage: 200 MILLIGRAM DAILY;
     Route: 048
  15. PREVACID [Concomitant]
     Route: 048

REACTIONS (2)
  - Alopecia [Not Recovered/Not Resolved]
  - Anaemia [Not Recovered/Not Resolved]
